FAERS Safety Report 6492534-3 (Version None)
Quarter: 2009Q4

REPORT INFORMATION
  Report Type: 
  Country: None (occurrence: None)
  Receive Date: 20091214
  Receipt Date: 20091207
  Transmission Date: 20100525
  Serious: Yes (Other)
  Sender: FDA-Public Use
  Company Number: AT-ROCHE-672961

PATIENT
  Age: 3 Year
  Sex: Female
  Weight: 15 kg

DRUGS (3)
  1. TAMIFLU [Suspect]
     Indication: H1N1 INFLUENZA
     Dosage: DOSE REPORTED AS 2 X 2.5 ML
     Route: 048
     Dates: start: 20091114, end: 20091117
  2. OSPEN [Suspect]
     Dosage: DOSE REPORTED AS 3 X 5 ML
     Route: 048
     Dates: start: 20091114
  3. NUREFLEX [Concomitant]
     Dosage: FORM: SUSPENSION
     Route: 048

REACTIONS (3)
  - AGGRESSION [None]
  - NAUSEA [None]
  - VOMITING [None]
